FAERS Safety Report 24333119 (Version 1)
Quarter: 2024Q3

REPORT INFORMATION
  Report Type: Spontaneous
  Country: US (occurrence: US)
  Receive Date: 20240918
  Receipt Date: 20240918
  Transmission Date: 20241016
  Serious: Yes (Other)
  Sender: GLAXOSMITHKLINE
  Company Number: US-GLAXOSMITHKLINE-US2024AMR113223

PATIENT

DRUGS (7)
  1. NIRAPARIB [Suspect]
     Active Substance: NIRAPARIB
     Indication: Ovarian cancer metastatic
     Dosage: UNK
  2. BEVACIZUMAB [Suspect]
     Active Substance: BEVACIZUMAB
     Indication: Ovarian cancer metastatic
     Dosage: UNK
  3. OLAPARIB [Suspect]
     Active Substance: OLAPARIB
     Indication: Ovarian cancer metastatic
     Dosage: UNK
  4. DOXIL [Suspect]
     Active Substance: DOXORUBICIN HYDROCHLORIDE
     Indication: Ovarian cancer metastatic
     Dosage: UNK
  5. ELAHERE [Suspect]
     Active Substance: MIRVETUXIMAB SORAVTANSINE-GYNX
     Indication: Ovarian cancer metastatic
     Dosage: UNK
  6. CARBOPLATIN [Suspect]
     Active Substance: CARBOPLATIN
  7. PACLITAXEL [Suspect]
     Active Substance: PACLITAXEL

REACTIONS (3)
  - Malignant neoplasm progression [Unknown]
  - Metastasis [Unknown]
  - Drug hypersensitivity [Unknown]
